FAERS Safety Report 4708238-0 (Version None)
Quarter: 2005Q2

REPORT INFORMATION
  Report Type: 
  Country: None (occurrence: None)
  Receive Date: 20050629
  Receipt Date: 20050511
  Transmission Date: 20051028
  Serious: No
  Sender: FDA-Public Use
  Company Number: 05P-163-0300639-00

PATIENT
  Age: 80 Year
  Sex: Female

DRUGS (8)
  1. HUMIRA [Suspect]
     Indication: RHEUMATOID ARTHRITIS
     Dosage: 40 MG, 1 IN 2 WK, SUBCUTANEOUS
     Route: 058
     Dates: start: 20050401, end: 20050401
  2. METHOTREXATE [Suspect]
     Indication: RHEUMATOID ARTHRITIS
     Dosage: 1 IN 1 WK, SUBCUTANEOUS
     Route: 058
     Dates: start: 20050201, end: 20050401
  3. RABEPRAZOLE SODIUM [Concomitant]
  4. DONNATAL [Concomitant]
  5. LIBREX [Concomitant]
  6. VITAMINS [Concomitant]
  7. ASPIRIN [Concomitant]
  8. FOLIC ACID [Concomitant]

REACTIONS (1)
  - WHITE BLOOD CELL COUNT DECREASED [None]
